FAERS Safety Report 6816114-2 (Version None)
Quarter: 2010Q3

REPORT INFORMATION
  Report Type: 
  Country: None (occurrence: None)
  Receive Date: 20100705
  Receipt Date: 20100629
  Transmission Date: 20110219
  Serious: Yes (Life-Threatening, Other)
  Sender: FDA-Public Use
  Company Number: JP-SHIRE-SPV1-2010-01167

PATIENT

DRUGS (9)
  1. FOSRENOL [Suspect]
     Indication: HYPERPHOSPHATAEMIA
     Route: 048
     Dates: start: 20091214
  2. SIGMART [Concomitant]
     Indication: ANGINA PECTORIS
     Dosage: 10 MG, UNK
     Route: 048
  3. ASPIRIN [Concomitant]
     Indication: ANGINA PECTORIS
     Dosage: 200 MG, UNK
     Route: 048
  4. PLETAL [Concomitant]
     Indication: ANGINA PECTORIS
     Dosage: 200 MG, UNK
     Route: 048
  5. TAKEPRON [Concomitant]
     Indication: PROPHYLAXIS
     Dosage: 15 MG, UNK
     Route: 048
  6. DIOVAN [Concomitant]
     Indication: HYPERTENSION
     Dosage: 40 MG, UNK
     Route: 048
  7. ATELEC [Concomitant]
     Indication: HYPERTENSION
     Dosage: 10 MG, UNK
     Route: 048
  8. RISUMIC [Concomitant]
     Indication: PROCEDURAL HYPOTENSION
     Dosage: 10 MG, UNK
     Route: 048
  9. METLIGINE [Concomitant]
     Indication: PROCEDURAL HYPOTENSION
     Dosage: 2 MG, UNK
     Route: 048

REACTIONS (3)
  - DRUG ADMINISTRATION ERROR [None]
  - LARGE INTESTINE PERFORATION [None]
  - SUBILEUS [None]
